FAERS Safety Report 6888481-5 (Version None)
Quarter: 2010Q3

REPORT INFORMATION
  Report Type: 
  Country: None (occurrence: None)
  Receive Date: 20100730
  Receipt Date: 20100719
  Transmission Date: 20110219
  Serious: Yes (Other)
  Sender: FDA-Public Use
  Company Number: PHEH2009US02154

PATIENT
  Sex: Male
  Weight: 59.864 kg

DRUGS (27)
  1. AREDIA [Suspect]
  2. ZOMETA [Suspect]
  3. ZETIA [Concomitant]
  4. RETROVIR [Concomitant]
  5. EPIVIR [Concomitant]
  6. ZERIT [Concomitant]
  7. VIDEX [Concomitant]
  8. LIPITOR [Concomitant]
  9. TOPROL-XL [Concomitant]
  10. RAMIPRIL [Concomitant]
  11. TRUVADA [Concomitant]
  12. COUMADIN [Concomitant]
  13. VIDEX [Concomitant]
  14. PRERISTON [Concomitant]
  15. DOXYCYCLINE [Concomitant]
  16. TOBRADEX [Concomitant]
  17. VELCADE [Concomitant]
  18. BACTRIM [Concomitant]
  19. VIREAD [Concomitant]
  20. KALETRA [Concomitant]
  21. SUSTRATE [Concomitant]
  22. THALIDOMID [Concomitant]
  23. PREZISTA (DARUNAVIR ETHANOLATE) [Concomitant]
  24. ISENTRESS [Concomitant]
  25. INTELENCE [Concomitant]
  26. NORVIR [Concomitant]
  27. DEBROX [Concomitant]

REACTIONS (32)
  - ABDOMINAL PAIN [None]
  - ALANINE AMINOTRANSFERASE INCREASED [None]
  - CERUMEN IMPACTION [None]
  - COUGH [None]
  - CYST [None]
  - DIARRHOEA [None]
  - DYSURIA [None]
  - EAR DISCOMFORT [None]
  - EAR PAIN [None]
  - EUSTACHIAN TUBE DYSFUNCTION [None]
  - FACIAL PAIN [None]
  - GINGIVAL PAIN [None]
  - GLYCOSURIA [None]
  - HEADACHE [None]
  - HYPERGLYCAEMIA [None]
  - HYPERTENSION [None]
  - HYPOACUSIS [None]
  - HYPOAESTHESIA [None]
  - LEFT VENTRICULAR HYPERTROPHY [None]
  - MUSCULOSKELETAL CHEST PAIN [None]
  - NEPHROLITHIASIS [None]
  - NEUROPATHY PERIPHERAL [None]
  - OSTEONECROSIS OF JAW [None]
  - OSTEOPENIA [None]
  - PAIN IN EXTREMITY [None]
  - PAIN IN JAW [None]
  - PALPITATIONS [None]
  - RHINITIS ALLERGIC [None]
  - SINUS TACHYCARDIA [None]
  - SINUSITIS [None]
  - TOOTH EXTRACTION [None]
  - VENTRICULAR EXTRASYSTOLES [None]
